FAERS Safety Report 6446419-9 (Version None)
Quarter: 2009Q4

REPORT INFORMATION
  Report Type: 
  Country: None (occurrence: None)
  Receive Date: 20091119
  Receipt Date: 20091109
  Transmission Date: 20100525
  Serious: Yes (Hospitalization, Other)
  Sender: FDA-Public Use
  Company Number: PHEH2009US14478

PATIENT
  Sex: Female
  Weight: 51.701 kg

DRUGS (10)
  1. EXJADE [Suspect]
     Indication: HAEMOLYTIC ANAEMIA
     Dosage: 500 MG, DAILY
     Route: 048
  2. EXJADE [Suspect]
     Indication: IRON OVERLOAD
  3. PROCRIT [Concomitant]
     Dosage: UNK, UNK
     Route: 065
  4. ALKERAN [Concomitant]
     Dosage: UNK, UNK
     Route: 065
  5. ALBUTEROL SULFATE AUTOHALER [Concomitant]
     Dosage: 4 MG, BID
  6. ACYCLOVIR [Concomitant]
     Dosage: 400 MG, BID
  7. FOLIC ACID [Concomitant]
     Dosage: 1 MG, QD
  8. PRESERVISION /FRA/ [Concomitant]
     Indication: VITAMIN SUPPLEMENTATION
     Dosage: UNK, TWICE DAILY
     Route: 065
  9. LASIX [Concomitant]
     Dosage: 20 MG AS NEEDED
     Route: 065
  10. VENTOLIN [Concomitant]
     Dosage: 90 MCG AS NEEDED

REACTIONS (10)
  - ASTHENIA [None]
  - BLOOD CHOLESTEROL ABNORMAL [None]
  - DIARRHOEA [None]
  - INCORRECT DOSE ADMINISTERED [None]
  - MACULAR DEGENERATION [None]
  - RESTLESS LEGS SYNDROME [None]
  - SLEEP DISORDER [None]
  - TREATMENT NONCOMPLIANCE [None]
  - VOMITING [None]
  - WEIGHT DECREASED [None]
